FAERS Safety Report 8214422-4 (Version None)
Quarter: 2012Q1

REPORT INFORMATION
  Report Type: 
  Country: None (occurrence: None)
  Receive Date: 20120316
  Receipt Date: 20120306
  Transmission Date: 20120608
  Serious: Yes (Death, Hospitalization, Other)
  Sender: FDA-Public Use
  Company Number: MX-SANOFI-AVENTIS-2012SA015400

PATIENT
  Age: 70 Year
  Sex: Male

DRUGS (4)
  1. PLENDIL [Concomitant]
     Route: 048
     Dates: end: 20110823
  2. ASPIRIN [Concomitant]
     Indication: PROPHYLAXIS
     Route: 048
     Dates: start: 20060101, end: 20110823
  3. PRAVASTATIN [Concomitant]
     Route: 048
     Dates: end: 20110823
  4. LANTUS [Suspect]
     Indication: TYPE 2 DIABETES MELLITUS
     Route: 058
     Dates: start: 20060101, end: 20110823

REACTIONS (3)
  - LUNG INFECTION [None]
  - HYPOGLYCAEMIA [None]
  - RENAL FAILURE CHRONIC [None]
